FAERS Safety Report 11350535 (Version 3)
Quarter: 2018Q3

REPORT INFORMATION
  Report Type: Spontaneous
  Country: PT (occurrence: PT)
  Receive Date: 20150807
  Receipt Date: 20180816
  Transmission Date: 20181010
  Serious: Yes (Hospitalization, Other)
  Sender: FDA-Public Use
  Company Number: PT-AUROBINDO-AUR-APL-2015-06660

PATIENT
  Age: 48 Year
  Sex: Female

DRUGS (7)
  1. VENLAFAXINE [Suspect]
     Active Substance: VENLAFAXINE HYDROCHLORIDE
     Indication: DEPRESSION
  2. VALPROIC ACID. [Suspect]
     Active Substance: VALPROIC ACID
     Dosage: 1000 MILLIGRAM
  3. VALPROIC ACID. [Suspect]
     Active Substance: VALPROIC ACID
     Indication: DEPRESSION
     Dosage: 1000 MG, UNK
     Route: 065
  4. PREGABALIN 300 MG [Suspect]
     Active Substance: PREGABALIN
     Indication: DEPRESSION
     Dosage: 300 MG, UNK
     Route: 065
  5. CLONAZEPAM. [Suspect]
     Active Substance: CLONAZEPAM
     Indication: DEPRESSION
     Dosage: 0.5 MG, UNK
     Route: 065
  6. CLONAZEPAM. [Suspect]
     Active Substance: CLONAZEPAM
     Indication: DEPRESSION
     Dosage: 0.5 MILLIGRAM
  7. VENLAFAXINE [Suspect]
     Active Substance: VENLAFAXINE HYDROCHLORIDE
     Indication: DEPRESSION
     Dosage: 300 MG, UNK
     Route: 065

REACTIONS (8)
  - Grandiosity [Unknown]
  - Euphoric mood [Unknown]
  - Hypomania [Unknown]
  - Logorrhoea [Unknown]
  - Drug withdrawal syndrome [Unknown]
  - Depression [Unknown]
  - Drug resistance [Unknown]
  - Drug ineffective [Unknown]
